FAERS Safety Report 8852342 (Version 1)
Quarter: 2012Q4

REPORT INFORMATION
  Report Type: Spontaneous
  Country: US (occurrence: None)
  Receive Date: 20121017
  Receipt Date: 20121017
  Transmission Date: 20130627
  Serious: Yes (Other)
  Sender: FDA-Public Use
  Company Number: APL-2012-00216

PATIENT
  Age: 67 Year
  Sex: Male

DRUGS (2)
  1. PECFENT [Suspect]
     Indication: CARCINOMA MOUTH
     Dosage: 100 ug Nasal Spray, 100 ug/ 1bottle  l
     Route: 045
     Dates: start: 20120112, end: 20120711
  2. PECFENT [Suspect]
     Indication: CARCINOMA MOUTH
     Dosage: 400 , UNK , UNK
     Route: 045
     Dates: start: 20100810, end: 20120512

REACTIONS (3)
  - Alcohol abuse [None]
  - Drug diversion [None]
  - Intentional drug misuse [None]
